FAERS Safety Report 12053306 (Version 2)
Quarter: 2017Q1

REPORT INFORMATION
  Report Type: Spontaneous
  Country: US (occurrence: US)
  Receive Date: 20160209
  Receipt Date: 20170105
  Transmission Date: 20170428
  Serious: Yes (Hospitalization)
  Sender: FDA-Public Use
  Company Number: US-ENDO PHARMACEUTICALS INC.-2015-003775

PATIENT
  Age: 49 Year
  Sex: Male
  Weight: 79 kg

DRUGS (1)
  1. TESTOSTERONE GEL [Suspect]
     Active Substance: TESTOSTERONE
     Indication: BLOOD TESTOSTERONE DECREASED
     Dosage: 1 PUMPS TO EACH THIGH
     Route: 065
     Dates: start: 2014

REACTIONS (3)
  - Incorrect dose administered [Unknown]
  - Myocardial infarction [Unknown]
  - Skin exfoliation [Not Recovered/Not Resolved]

NARRATIVE: CASE EVENT DATE: 2014
